FAERS Safety Report 20411484 (Version 1)
Quarter: 2022Q1

REPORT INFORMATION
  Report Type: Spontaneous
  Country: CN (occurrence: CN)
  Receive Date: 20220201
  Receipt Date: 20220201
  Transmission Date: 20220423
  Serious: Yes (Hospitalization)
  Sender: FDA-Public Use
  Company Number: CN-GUERBET-CN-20220020

PATIENT
  Age: 53 Year
  Sex: Female
  Weight: 44.5 kg

DRUGS (5)
  1. LIPIODOL ULTRA-FLUIDE [Suspect]
     Active Substance: ETHIODIZED OIL
     Indication: Transcatheter arterial chemoembolisation
     Route: 013
     Dates: start: 20220111, end: 20220111
  2. RALTITREXED [Suspect]
     Active Substance: RALTITREXED
     Indication: Chemotherapy
     Route: 013
     Dates: start: 20220111, end: 20220111
  3. PIRARUBICIN [Suspect]
     Active Substance: PIRARUBICIN
     Indication: Transcatheter arterial chemoembolisation
     Route: 013
     Dates: start: 20220111, end: 20220111
  4. LOBAPLATIN [Suspect]
     Active Substance: LOBAPLATIN
     Indication: Transcatheter arterial chemoembolisation
     Route: 013
     Dates: start: 20220111, end: 20220111
  5. SODIUM CHLORIDE [Concomitant]
     Active Substance: SODIUM CHLORIDE
     Indication: Chemotherapy
     Route: 013
     Dates: start: 20220111, end: 20220111

REACTIONS (2)
  - Hepatic enzyme increased [Recovering/Resolving]
  - Overdose [Recovering/Resolving]

NARRATIVE: CASE EVENT DATE: 20220111
